FAERS Safety Report 24339434 (Version 6)
Quarter: 2025Q2

REPORT INFORMATION
  Report Type: Report from Study
  Country: US (occurrence: US)
  Receive Date: 20240919
  Receipt Date: 20250611
  Transmission Date: 20250717
  Serious: Yes (Hospitalization, Other)
  Sender: ABBVIE
  Company Number: US-ABBVIE-5927974

PATIENT
  Age: 65 Year
  Sex: Male

DRUGS (4)
  1. RINVOQ [Suspect]
     Active Substance: UPADACITINIB
     Indication: Crohn^s disease
     Route: 048
  2. RINVOQ [Suspect]
     Active Substance: UPADACITINIB
     Indication: Crohn^s disease
     Route: 048
     Dates: start: 20240531
  3. RINVOQ [Suspect]
     Active Substance: UPADACITINIB
     Indication: Crohn^s disease
     Route: 048
  4. RINVOQ [Suspect]
     Active Substance: UPADACITINIB
     Indication: Crohn^s disease
     Route: 048

REACTIONS (15)
  - Dehydration [Not Recovered/Not Resolved]
  - Product lot number issue [Not Recovered/Not Resolved]
  - Head injury [Recovering/Resolving]
  - Shoulder fracture [Recovering/Resolving]
  - Gastrooesophageal reflux disease [Recovered/Resolved]
  - Drug ineffective [Recovering/Resolving]
  - Vomiting [Not Recovered/Not Resolved]
  - Asthenia [Unknown]
  - Deafness [Recovered/Resolved]
  - Abdominal pain upper [Unknown]
  - Illness [Recovering/Resolving]
  - Fall [Recovering/Resolving]
  - Back injury [Recovering/Resolving]
  - Pain [Recovering/Resolving]
  - Gait disturbance [Recovering/Resolving]

NARRATIVE: CASE EVENT DATE: 20240101
